FAERS Safety Report 5046575-3 (Version None)
Quarter: 2006Q3

REPORT INFORMATION
  Report Type: 
  Country: None (occurrence: None)
  Receive Date: 20060705
  Receipt Date: 20060705
  Transmission Date: 20061208
  Serious: No
  Sender: FDA-Public Use
  Company Number: None

PATIENT
  Sex: Female

DRUGS (1)
  1. INJ IVOMEC PLUS [Suspect]
     Indication: DRUG ADMINISTRATION ERROR
     Dosage: INJ
     Dates: start: 20060609, end: 20060609

REACTIONS (8)
  - ACCIDENTAL EXPOSURE [None]
  - ACCIDENTAL NEEDLE STICK [None]
  - INJECTION SITE PAIN [None]
  - INJECTION SITE SWELLING [None]
  - OEDEMA [None]
  - PAIN IN EXTREMITY [None]
  - SKIN IRRITATION [None]
  - THERAPEUTIC PRODUCT CONTAMINATION [None]
